FAERS Safety Report 4304617-4 (Version None)
Quarter: 2004Q1

REPORT INFORMATION
  Report Type: 
  Country: None (occurrence: None)
  Receive Date: 20040226
  Receipt Date: 20031022
  Transmission Date: 20041129
  Serious: No
  Sender: FDA-Public Use
  Company Number: US-GLAXOSMITHKLINE-A0431224A

PATIENT
  Age: 66 Year
  Sex: Male
  Weight: 74.5 kg

DRUGS (5)
  1. WELLBUTRIN [Suspect]
     Indication: ILL-DEFINED DISORDER
     Route: 048
  2. LIPITOR [Concomitant]
     Indication: BLOOD CHOLESTEROL INCREASED
     Dosage: 20MG UNKNOWN
     Route: 065
  3. PRILOSEC [Concomitant]
     Indication: GASTROOESOPHAGEAL REFLUX DISEASE
     Dosage: 20MG UNKNOWN
  4. CLARITIN [Concomitant]
     Indication: HYPERSENSITIVITY
     Route: 065
  5. OCUPRESS [Concomitant]
     Indication: GLAUCOMA

REACTIONS (2)
  - COUGH [None]
  - UNEXPECTED THERAPEUTIC DRUG EFFECT [None]
